FAERS Safety Report 10172361 (Version 1)
Quarter: 2014Q2

REPORT INFORMATION
  Report Type: Spontaneous
  Country: US (occurrence: US)
  Receive Date: 20140515
  Receipt Date: 20140515
  Transmission Date: 20141212
  Serious: Yes (Hospitalization)
  Sender: FDA-Public Use
  Company Number: US-JNJFOC-20140506551

PATIENT
  Sex: Male

DRUGS (9)
  1. IMBRUVICA [Suspect]
     Indication: CHRONIC LYMPHOCYTIC LEUKAEMIA
     Route: 048
  2. IMBRUVICA [Suspect]
     Indication: CHRONIC LYMPHOCYTIC LEUKAEMIA
     Route: 048
     Dates: start: 20140123
  3. SIMVASTATIN [Concomitant]
  4. FLOMAX [Concomitant]
  5. OMEPRAZOLE [Concomitant]
  6. PREDNISONE [Concomitant]
  7. DICYCLOMINE [Concomitant]
  8. ACYCLOVIR [Concomitant]
  9. HUMALOG [Concomitant]

REACTIONS (2)
  - Haematochezia [Recovered/Resolved]
  - Blood urine present [Recovered/Resolved]
